FAERS Safety Report 18630317 (Version 1)
Quarter: 2020Q4

REPORT INFORMATION
  Report Type: Spontaneous
  Country: BG (occurrence: BG)
  Receive Date: 20201218
  Receipt Date: 20201218
  Transmission Date: 20210114
  Serious: Yes (Other)
  Sender: FDA-Public Use
  Company Number: BG-SA-2020SA362042

PATIENT

DRUGS (1)
  1. OMNIC [Suspect]
     Active Substance: TAMSULOSIN HYDROCHLORIDE
     Indication: PRODUCT USED FOR UNKNOWN INDICATION
     Dosage: UNK
     Route: 065

REACTIONS (4)
  - Pollakiuria [Recovered/Resolved]
  - Micturition urgency [Recovered/Resolved]
  - Escherichia urinary tract infection [Unknown]
  - Prostatomegaly [Unknown]
